FAERS Safety Report 6809371-X (Version None)
Quarter: 2010Q2

REPORT INFORMATION
  Report Type: 
  Country: None (occurrence: None)
  Receive Date: 20100630
  Receipt Date: 20100115
  Transmission Date: 20101027
  Serious: Yes (Other)
  Sender: FDA-Public Use
  Company Number: US-ASTRAZENECA-2009SE15669

PATIENT
  Age: 56 Year
  Sex: Male
  Weight: 83 kg

DRUGS (12)
  1. SEROQUEL [Suspect]
     Indication: SCHIZOPHRENIA
     Route: 048
     Dates: start: 20030101, end: 20080101
  2. SEROQUEL [Suspect]
     Route: 048
     Dates: start: 20080227
  3. ABILIFY [Concomitant]
     Dates: start: 20080227
  4. RISPERDAL [Concomitant]
     Dosage: 2 TO 3 MG DAILY
     Dates: start: 20080227
  5. STELAZINE [Concomitant]
  6. THORAZINE [Concomitant]
  7. ZYPREXA [Concomitant]
  8. SYMBYAX [Concomitant]
  9. PREVACID [Concomitant]
     Dates: start: 20080227
  10. TRILEPTAL [Concomitant]
     Dates: start: 20080227
  11. SIMVASTATIN [Concomitant]
     Dates: start: 20080227
  12. ATENOLOL [Concomitant]
     Dates: start: 20080227

REACTIONS (4)
  - BLOOD CHOLESTEROL INCREASED [None]
  - HYPERLIPIDAEMIA [None]
  - PERICARDIAL DISEASE [None]
  - TYPE 2 DIABETES MELLITUS [None]
